FAERS Safety Report 14367659 (Version 5)
Quarter: 2023Q4

REPORT INFORMATION
  Report Type: Other
  Country: JP (occurrence: JP)
  Receive Date: 20180109
  Receipt Date: 20231011
  Transmission Date: 20240110
  Serious: Yes (Hospitalization, Other)
  Sender: FDA-Public Use
  Company Number: JP-ROCHE-1773907

PATIENT
  Age: 3 Year
  Sex: Female
  Weight: 29.4 kg

DRUGS (38)
  1. CELLCEPT [Suspect]
     Active Substance: MYCOPHENOLATE MOFETIL
     Indication: Nephrotic syndrome
     Dosage: 750-850MG
     Route: 048
     Dates: start: 20121016, end: 20160313
  2. CELLCEPT [Suspect]
     Active Substance: MYCOPHENOLATE MOFETIL
     Route: 048
     Dates: start: 20160314
  3. RITUXAN [Suspect]
     Active Substance: RITUXIMAB
     Indication: Nephrotic syndrome
     Dosage: 280MG,ONCE IN1DAY
     Route: 041
     Dates: start: 20150731
  4. RITUXAN [Suspect]
     Active Substance: RITUXIMAB
     Dosage: SECOND DOSE OF RITUXIMAB, 320MG,ONCE IN1DAY
     Route: 041
     Dates: start: 20160609
  5. PREDONINE [Suspect]
     Active Substance: PREDNISOLONE
     Indication: Nephrotic syndrome
     Dosage: 45-5 MG
     Route: 048
     Dates: start: 20150506, end: 20151215
  6. PREDONINE [Suspect]
     Active Substance: PREDNISOLONE
     Indication: Premedication
     Dosage: SINGLE DOSE, PREMEDICATION BEFORE RITUXIMAB INFUSION.
     Route: 048
     Dates: start: 20150731, end: 20150731
  7. PREDONINE [Suspect]
     Active Substance: PREDNISOLONE
     Dosage: 45-5 MG DAILY-EVERY OTHER DAY
     Route: 048
     Dates: start: 20160513
  8. PREDONINE [Suspect]
     Active Substance: PREDNISOLONE
     Dosage: SINGLE DOSE, PREMEDICATION BEFORE RITUXIMAB INFUSION.
     Route: 048
     Dates: start: 20160609, end: 20160609
  9. PREDONINE [Suspect]
     Active Substance: PREDNISOLONE
     Dosage: DURING THE PERIOD MAXIMAL DOSE:15 MG/DAY MINIMAL DOSE:5 MG/DAY
     Route: 048
     Dates: start: 2016, end: 20160822
  10. PREDONINE [Suspect]
     Active Substance: PREDNISOLONE
     Dosage: DURING THE PERIOD MAXIMAL DOSE:45 MG/DAY MINIMAL DOSE:5 MG/DAY DOSE INTERVAL UNCERTAINTY
     Route: 048
     Dates: start: 20170111, end: 20170219
  11. PREDONINE [Suspect]
     Active Substance: PREDNISOLONE
     Dosage: DURING THE PERIOD MAXIMAL DOSE:60 MG/DAY MINIMAL DOSE:40 MG/DAY DOSE INTERVAL UNCERTAINTY
     Route: 065
     Dates: start: 20170220, end: 20170319
  12. PREDONINE [Suspect]
     Active Substance: PREDNISOLONE
     Dosage: DURING THE PERIOD MAXIMAL DOSE:60 MG/DAY MINIMAL DOSE:35 MG/DAY DOSE INTERVAL UNCERTAINTY
     Route: 048
     Dates: start: 20170320
  13. NEORAL [Suspect]
     Active Substance: CYCLOSPORINE
     Indication: Nephrotic syndrome
     Route: 048
     Dates: start: 20121010, end: 20150216
  14. NEORAL [Suspect]
     Active Substance: CYCLOSPORINE
     Dosage: DOSE INTERVAL UNCERTAINTY
     Route: 048
     Dates: start: 20170504, end: 20170512
  15. NEORAL [Suspect]
     Active Substance: CYCLOSPORINE
     Dosage: DOSE INTERVAL UNCERTAINTY
     Route: 048
     Dates: start: 20170513, end: 20170710
  16. CALONAL [Concomitant]
     Active Substance: ACETAMINOPHEN
     Indication: Premedication
     Dosage: SINGLE DOSE, PREMEDICATION BEFORE RITUXIMAB INFUSION.
     Route: 048
     Dates: start: 20150731, end: 20150731
  17. CALONAL [Concomitant]
     Active Substance: ACETAMINOPHEN
     Dosage: SINGLE DOSE, PREMEDICATION BEFORE RITUXIMAB INFUSION.
     Route: 048
     Dates: start: 20160609, end: 20160609
  18. PERIACTIN [Concomitant]
     Active Substance: CYPROHEPTADINE HYDROCHLORIDE
     Indication: Premedication
     Dosage: SINGLE DOSE, PREMEDICATION BEFORE RITUXIMAB INFUSION.
     Route: 048
     Dates: start: 20150731, end: 20150731
  19. SULFAMETHOXAZOLE\TRIMETHOPRIM [Concomitant]
     Active Substance: SULFAMETHOXAZOLE\TRIMETHOPRIM
     Indication: Infection prophylaxis
     Route: 048
     Dates: start: 20150803, end: 20160214
  20. SULFAMETHOXAZOLE\TRIMETHOPRIM [Concomitant]
     Active Substance: SULFAMETHOXAZOLE\TRIMETHOPRIM
     Route: 048
     Dates: start: 20160610
  21. ONEALFA [Concomitant]
     Active Substance: ALFACALCIDOL
     Indication: Prophylaxis
     Route: 048
     Dates: start: 20150506, end: 20151215
  22. ONEALFA [Concomitant]
     Active Substance: ALFACALCIDOL
     Route: 048
     Dates: start: 20160513
  23. GASTER [Concomitant]
     Active Substance: FAMOTIDINE
     Indication: Prophylaxis
     Route: 048
     Dates: start: 20150506, end: 20151215
  24. GASTER [Concomitant]
     Active Substance: FAMOTIDINE
     Route: 048
     Dates: start: 20160513
  25. POLARAMINE [Concomitant]
     Active Substance: DEXCHLORPHENIRAMINE MALEATE
     Indication: Premedication
     Route: 048
     Dates: start: 20160609, end: 20160609
  26. DIPYRIDAMOLE [Concomitant]
     Active Substance: DIPYRIDAMOLE
     Route: 048
     Dates: start: 20151130
  27. NIFEDIPINE [Concomitant]
     Active Substance: NIFEDIPINE
     Indication: Hypertension
     Route: 048
     Dates: start: 20170309, end: 20170507
  28. CYCLOPHOSPHAMIDE [Concomitant]
     Active Substance: CYCLOPHOSPHAMIDE
     Indication: Nephrotic syndrome
     Route: 042
     Dates: start: 20170712, end: 20170731
  29. CALBLOCK (JAPAN) [Concomitant]
     Indication: Hypertension
     Dosage: DOSE INTERVAL UNCERTAINTY
     Dates: start: 20170508, end: 20170510
  30. CALBLOCK (JAPAN) [Concomitant]
     Dosage: DOSE INTERVAL UNCERTAINTY
     Dates: start: 20170511, end: 20170515
  31. CALBLOCK (JAPAN) [Concomitant]
     Dosage: DOSE INTERVAL UNCERTAINTY
     Dates: start: 20170516, end: 20170530
  32. CALBLOCK (JAPAN) [Concomitant]
     Dosage: DOSE INTERVAL UNCERTAINTY
     Dates: start: 20170531, end: 20170719
  33. CANDESARTAN CILEXETIL [Concomitant]
     Active Substance: CANDESARTAN CILEXETIL
     Indication: Hypertension
     Route: 048
     Dates: start: 20170508
  34. AMLODIPINE BESYLATE [Concomitant]
     Active Substance: AMLODIPINE BESYLATE
     Indication: Hypertension
     Route: 048
     Dates: start: 20170720
  35. ITRACONAZOLE [Concomitant]
     Active Substance: ITRACONAZOLE
     Indication: Infection prophylaxis
     Route: 048
     Dates: start: 20170804
  36. NIFEDIPINE [Concomitant]
     Active Substance: NIFEDIPINE
     Indication: Hypertension
     Route: 042
     Dates: start: 20170710, end: 20170718
  37. CEFACLOR [Concomitant]
     Active Substance: CEFACLOR
     Dosage: UNKNOWN
     Dates: start: 20170511, end: 20170523
  38. CEFACLOR [Concomitant]
     Active Substance: CEFACLOR
     Dosage: UNKNOWN
     Dates: start: 20170524, end: 20170803

REACTIONS (22)
  - Gastroenteritis [Recovering/Resolving]
  - Rhinorrhoea [Recovering/Resolving]
  - Cough [Recovered/Resolved]
  - Hypogammaglobulinaemia [Not Recovered/Not Resolved]
  - Hypertension [Recovered/Resolved with Sequelae]
  - Cystitis [Recovering/Resolving]
  - Seizure [Recovering/Resolving]
  - Oropharyngeal pain [Recovered/Resolved]
  - Oropharyngeal discomfort [Recovered/Resolved]
  - Bronchitis [Recovered/Resolved]
  - Otitis media [Recovered/Resolved]
  - Otitis media [Recovered/Resolved]
  - Pyrexia [Recovered/Resolved]
  - C-reactive protein increased [Recovered/Resolved]
  - Pyuria [Recovering/Resolving]
  - Abdominal pain [Recovered/Resolved]
  - Vomiting [Recovering/Resolving]
  - Faeces soft [Recovering/Resolving]
  - Cough [Recovered/Resolved]
  - Abdominal pain [Recovered/Resolved]
  - Abdominal pain [Recovering/Resolving]
  - Off label use [Unknown]

NARRATIVE: CASE EVENT DATE: 20121016
